FAERS Safety Report 4519865-8 (Version None)
Quarter: 2004Q4

REPORT INFORMATION
  Report Type: 
  Country: None (occurrence: None)
  Receive Date: 20041207
  Receipt Date: 20041122
  Transmission Date: 20050328
  Serious: Yes (Death)
  Sender: FDA-Public Use
  Company Number: US-JNJFOC-20040100462

PATIENT
  Sex: Female

DRUGS (2)
  1. REMINYL [Suspect]
     Route: 049
     Dates: start: 20011113
  2. REMINYL [Suspect]
     Route: 049
     Dates: start: 20011113

REACTIONS (2)
  - DEHYDRATION [None]
  - UROSEPSIS [None]
